FAERS Safety Report 18475544 (Version 2)
Quarter: 2020Q4

REPORT INFORMATION
  Report Type: Spontaneous
  Country: US (occurrence: US)
  Receive Date: 20201106
  Receipt Date: 20201110
  Transmission Date: 20210114
  Serious: Yes (Other)
  Sender: FDA-Public Use
  Company Number: US-PFIZER INC-2020428504

PATIENT
  Age: 53 Year
  Sex: Female

DRUGS (9)
  1. TUCATINIB [Suspect]
     Active Substance: TUCATINIB
     Dosage: UNK
  2. TRAZODONE [Concomitant]
     Active Substance: TRAZODONE HYDROCHLORIDE
     Dosage: UNK
  3. ATENOLOL. [Concomitant]
     Active Substance: ATENOLOL
     Dosage: UNK
  4. TUCATINIB [Suspect]
     Active Substance: TUCATINIB
     Dosage: UNK
  5. LORAZEPAM. [Suspect]
     Active Substance: LORAZEPAM
     Dosage: UNK
  6. TUCATINIB [Suspect]
     Active Substance: TUCATINIB
     Dosage: UNK
  7. LOPERAMIDE [Suspect]
     Active Substance: LOPERAMIDE
     Dosage: UNK
  8. XELODA [Suspect]
     Active Substance: CAPECITABINE
     Dosage: UNK (7 DAYS ON 7 DAYS OFF)
  9. TUCATINIB [Suspect]
     Active Substance: TUCATINIB
     Indication: BREAST CANCER FEMALE
     Dosage: UNK

REACTIONS (8)
  - Fatigue [Recovering/Resolving]
  - Abdominal distension [Unknown]
  - COVID-19 [Recovering/Resolving]
  - Abdominal pain upper [Unknown]
  - Heart rate increased [Not Recovered/Not Resolved]
  - Diarrhoea [Recovered/Resolved]
  - Blood pressure increased [Unknown]
  - Flatulence [Unknown]

NARRATIVE: CASE EVENT DATE: 2020
